FAERS Safety Report 8321765-2 (Version None)
Quarter: 2012Q2

REPORT INFORMATION
  Report Type: 
  Country: None (occurrence: None)
  Receive Date: 20120430
  Receipt Date: 20120426
  Transmission Date: 20120825
  Serious: Yes (Death)
  Sender: FDA-Public Use
  Company Number: TN-SANOFI-AVENTIS-2012SA029719

PATIENT
  Age: 80 Year
  Sex: Female

DRUGS (9)
  1. CORDARONE [Concomitant]
     Route: 048
     Dates: end: 20120224
  2. PLAVIX [Suspect]
     Indication: STENT PLACEMENT
     Route: 048
     Dates: start: 20111212, end: 20120224
  3. ASPEGIC 1000 [Concomitant]
     Route: 048
     Dates: end: 20120224
  4. LASIX [Concomitant]
     Route: 048
     Dates: end: 20120224
  5. CORVASAL [Concomitant]
     Route: 048
     Dates: end: 20120224
  6. AMARYL [Concomitant]
     Route: 048
     Dates: end: 20120224
  7. PLAVIX [Suspect]
     Indication: ACUTE CORONARY SYNDROME
     Route: 048
     Dates: start: 20111212, end: 20120224
  8. SINTROM [Concomitant]
     Route: 048
     Dates: end: 20120224
  9. LANSOPRAZOLE [Concomitant]
     Route: 048
     Dates: end: 20120224

REACTIONS (1)
  - SUDDEN DEATH [None]
